FAERS Safety Report 7892210-6 (Version None)
Quarter: 2011Q4

REPORT INFORMATION
  Report Type: 
  Country: None (occurrence: None)
  Receive Date: 20111104
  Receipt Date: 20111025
  Transmission Date: 20120403
  Serious: Yes (Hospitalization)
  Sender: FDA-Public Use
  Company Number: US-ASTRAZENECA-2011SE64773

PATIENT
  Age: 71 Year
  Sex: Male

DRUGS (1)
  1. PULMICORT [Suspect]
     Route: 055

REACTIONS (1)
  - PERICARDIAL EFFUSION [None]
